FAERS Safety Report 6844306-5 (Version None)
Quarter: 2010Q3

REPORT INFORMATION
  Report Type: 
  Country: None (occurrence: None)
  Receive Date: 20100715
  Receipt Date: 20100708
  Transmission Date: 20110219
  Serious: Yes (Hospitalization)
  Sender: FDA-Public Use
  Company Number: AU-ROCHE-711658

PATIENT
  Sex: Male
  Weight: 90 kg

DRUGS (7)
  1. RIBAVIRIN [Suspect]
     Indication: HEPATITIS C
     Dosage: 3 DOSES TWICE A DAY
     Route: 048
     Dates: start: 20091015, end: 20100331
  2. RIBAVIRIN [Suspect]
     Route: 048
     Dates: start: 20100401
  3. PEGINTERFERON ALFA-2A [Suspect]
     Indication: HEPATITIS C
     Route: 058
     Dates: start: 20091015, end: 20100328
  4. BLINDED TMC435 [Suspect]
     Indication: HEPATITIS C
     Dosage: FREQUENCY: TWICE A DAY IN MORNING, DOSE BLINDED
     Route: 048
     Dates: start: 20091015, end: 20100401
  5. ACETAMINOPHEN [Concomitant]
     Indication: ARTHRALGIA
     Dosage: A AS PER NEEDED
     Route: 048
     Dates: start: 20091015
  6. ACETAMINOPHEN [Concomitant]
     Dosage: OTHER INDICATION: MYALGIA
     Route: 048
     Dates: start: 20100305
  7. ENDONE [Concomitant]
     Indication: BILIARY COLIC
     Dosage: FREQUENCY: 1 AS NECESSARY
     Route: 048
     Dates: start: 20100307

REACTIONS (1)
  - CHOLECYSTITIS [None]
